FAERS Safety Report 9833521 (Version 3)
Quarter: 2014Q1

REPORT INFORMATION
  Report Type: Spontaneous
  Country: US (occurrence: US)
  Receive Date: 20140122
  Receipt Date: 20140317
  Transmission Date: 20141002
  Serious: Yes (Life-Threatening, Hospitalization, Disabling, Other)
  Sender: FDA-Public Use
  Company Number: US-009507513-1401USA007356

PATIENT
  Age: 18 Year
  Sex: Female
  Weight: 67.12 kg

DRUGS (4)
  1. NUVARING [Suspect]
     Indication: CONTRACEPTION
     Dosage: UNK
     Route: 067
     Dates: start: 20130716, end: 20140103
  2. NUVARING [Suspect]
     Indication: MENSTRUATION IRREGULAR
  3. LOVENOX [Concomitant]
  4. IBUPROFEN [Concomitant]
     Dosage: 600 MG, Q6H

REACTIONS (9)
  - Thrombolysis [Recovered/Resolved]
  - Catheterisation venous [Recovered/Resolved]
  - Angioplasty [Recovered/Resolved]
  - Venous stent insertion [Recovered/Resolved]
  - May-Thurner syndrome [Unknown]
  - Deep vein thrombosis [Recovered/Resolved]
  - Tonsillectomy [Unknown]
  - Intervertebral disc protrusion [Unknown]
  - Drug administration error [Unknown]
